FAERS Safety Report 11713174 (Version 1)
Quarter: 2015Q4

REPORT INFORMATION
  Report Type: Spontaneous
  Country: US (occurrence: US)
  Receive Date: 20151109
  Receipt Date: 20151109
  Transmission Date: 20160304
  Serious: No
  Sender: FDA-Public Use
  Company Number: US-009507513-1511USA000907

PATIENT
  Sex: Female
  Weight: 75.74 kg

DRUGS (2)
  1. ADDERALL [Concomitant]
     Active Substance: AMPHETAMINE ASPARTATE\AMPHETAMINE SULFATE\DEXTROAMPHETAMINE SACCHARATE\DEXTROAMPHETAMINE SULFATE
  2. IMPLANON [Suspect]
     Active Substance: ETONOGESTREL
     Indication: CONTRACEPTION
     Dosage: 68 MG EVERY 3 YEARS
     Route: 059
     Dates: start: 2011

REACTIONS (7)
  - Pregnancy with implant contraceptive [Unknown]
  - Breast pain [Not Recovered/Not Resolved]
  - Unintended pregnancy [Unknown]
  - Incorrect drug administration duration [Unknown]
  - Abdominal pain [Not Recovered/Not Resolved]
  - Dyspepsia [Not Recovered/Not Resolved]
  - Weight increased [Not Recovered/Not Resolved]

NARRATIVE: CASE EVENT DATE: 2015
